FAERS Safety Report 9414336 (Version 1)
Quarter: 2013Q2

REPORT INFORMATION
  Report Type: Spontaneous
  Country: US (occurrence: None)
  Receive Date: 20130619
  Receipt Date: 20130619
  Transmission Date: 20140414
  Serious: Yes (Hospitalization)
  Sender: FDA-Public Use
  Company Number: 2013GMK005854

PATIENT
  Age: 38 Year
  Sex: Male

DRUGS (1)
  1. TERBINAFINE HCL [Suspect]
     Indication: TINEA PEDIS
     Route: 048

REACTIONS (10)
  - Acute generalised exanthematous pustulosis [None]
  - Dermatitis exfoliative [None]
  - Skin exfoliation [None]
  - Rash pustular [None]
  - Rash pruritic [None]
  - Skin plaque [None]
  - Erythema [None]
  - Dermatitis [None]
  - Oedema peripheral [None]
  - Pain [None]
